FAERS Safety Report 6986250-9 (Version None)
Quarter: 2010Q3

REPORT INFORMATION
  Report Type: 
  Country: None (occurrence: None)
  Receive Date: 20100915
  Receipt Date: 20090609
  Transmission Date: 20110219
  Serious: No
  Sender: FDA-Public Use
  Company Number: US-WYE-H09681609

PATIENT
  Sex: Female

DRUGS (2)
  1. PRISTIQ [Suspect]
     Indication: ANXIETY
     Route: 048
     Dates: start: 20090604, end: 20090608
  2. PRISTIQ [Suspect]
     Indication: STRESS

REACTIONS (3)
  - BACK PAIN [None]
  - CONSTIPATION [None]
  - FATIGUE [None]
